FAERS Safety Report 6942537-7 (Version None)
Quarter: 2010Q3

REPORT INFORMATION
  Report Type: 
  Country: None (occurrence: None)
  Receive Date: 20100826
  Receipt Date: 20100726
  Transmission Date: 20110219
  Serious: No
  Sender: FDA-Public Use
  Company Number: US-BAYER-201025884NA

PATIENT
  Age: 72 Year
  Sex: Female

DRUGS (7)
  1. BETAPACE [Suspect]
     Indication: ATRIAL FIBRILLATION
  2. PRAVACHOL [Concomitant]
  3. AVAPRO [Concomitant]
  4. POTASSIUM CHLORIDE [Concomitant]
  5. SPIRONOLACTONE [Concomitant]
  6. HYDRALAZINE [Concomitant]
  7. CARDURA [Concomitant]

REACTIONS (1)
  - ATRIAL FIBRILLATION [None]
